FAERS Safety Report 7915203-9 (Version None)
Quarter: 2011Q4

REPORT INFORMATION
  Report Type: 
  Country: None (occurrence: None)
  Receive Date: 20111115
  Receipt Date: 20111114
  Transmission Date: 20120403
  Serious: No
  Sender: FDA-Public Use
  Company Number: US-PFIZER INC-2011278148

PATIENT
  Sex: Female

DRUGS (2)
  1. CHANTIX [Suspect]
     Dosage: 0.5 MG, 2X/DAY
     Dates: start: 20110101, end: 20111026
  2. CHANTIX [Suspect]
     Indication: SMOKING CESSATION THERAPY
     Dosage: 0.5 MG, 1X/DAY
     Route: 048
     Dates: start: 20110928, end: 20110101

REACTIONS (6)
  - CONFUSIONAL STATE [None]
  - ABNORMAL DREAMS [None]
  - CONSTIPATION [None]
  - MIDDLE INSOMNIA [None]
  - GAIT DISTURBANCE [None]
  - DISTURBANCE IN ATTENTION [None]
